FAERS Safety Report 6054534-7 (Version None)
Quarter: 2009Q1

REPORT INFORMATION
  Report Type: 
  Country: None (occurrence: None)
  Receive Date: 20090127
  Receipt Date: 20090121
  Transmission Date: 20090719
  Serious: Yes (Other)
  Sender: FDA-Public Use
  Company Number: PHHY2009BR00957

PATIENT
  Sex: Female
  Weight: 105 kg

DRUGS (10)
  1. GALVUS MET COMBIPACK [Suspect]
     Indication: DIABETES MELLITUS
     Dosage: BOTH TABLETS MORNING AND NIGHT
     Route: 048
     Dates: start: 20090105
  2. HUMAN-INSULIN 'NORDISK' [Concomitant]
     Indication: DIABETES MELLITUS
     Dosage: 30 IU AT NIGHT IN BELLY OR ARM
  3. ARTIFICIAL TEARS [Concomitant]
     Indication: EYE DISORDER
     Dosage: UNK
  4. PURAN T4 [Concomitant]
     Indication: HYPERTHYROIDISM
     Dosage: UNK
  5. OMEPRAZOLE [Concomitant]
     Dosage: UNK
     Route: 048
  6. CAPTOPRIL [Concomitant]
     Indication: HYPERTENSION
     Dosage: UNK
     Route: 048
  7. FLUOXETINE HCL [Concomitant]
     Dosage: UNK
     Route: 048
     Dates: start: 20090112
  8. AEROLIN [Concomitant]
     Indication: RHINITIS
     Dosage: UNK
  9. NARIDRIN [Concomitant]
     Indication: RHINITIS
     Dosage: UNK
  10. FORASEQ [Concomitant]
     Dosage: UNK

REACTIONS (13)
  - BLOOD GLUCOSE INCREASED [None]
  - EATING DISORDER [None]
  - EYE DISORDER [None]
  - EYE IRRITATION [None]
  - EYE PAIN [None]
  - EYE PRURITUS [None]
  - FORMICATION [None]
  - HYPERSOMNIA [None]
  - LACRIMATION INCREASED [None]
  - NERVOUSNESS [None]
  - OEDEMA PERIPHERAL [None]
  - PERIPHERAL COLDNESS [None]
  - SOMNOLENCE [None]
